FAERS Safety Report 5635631-4 (Version None)
Quarter: 2008Q1

REPORT INFORMATION
  Report Type: 
  Country: None (occurrence: None)
  Receive Date: 20080219
  Receipt Date: 20080207
  Transmission Date: 20080703
  Serious: Yes (Hospitalization)
  Sender: FDA-Public Use
  Company Number: 056-C5013-07101127

PATIENT
  Age: 52 Year
  Sex: Female

DRUGS (2)
  1. CC-5013 (LENALIDOMIDE) (CAPSULES) [Suspect]
     Indication: MULTIPLE MYELOMA
     Dosage: ORAL, ORAL
     Route: 048
  2. DEXAMETHASONE TAB [Concomitant]

REACTIONS (1)
  - CYTOLYTIC HEPATITIS [None]
